FAERS Safety Report 8794591 (Version 1)
Quarter: 2012Q4

REPORT INFORMATION
  Report Type: 
  Country: IT (occurrence: IT)
  Receive Date: 20120917
  Receipt Date: 20120917
  Transmission Date: 20130627
  Serious: Yes (Other)
  Sender: FDA-Public Use
  Company Number: PHHY2012IT079933

PATIENT
  Age: 53 Year
  Sex: Female

DRUGS (1)
  1. VALSARTAN/HYDROCHLOROTHIAZIDE [Suspect]
     Dosage: 160 mg vals/25 mg HCT, QD
     Route: 048
     Dates: start: 20110620, end: 20120619

REACTIONS (2)
  - Atrioventricular block first degree [Unknown]
  - Syncope [Recovered/Resolved]
